FAERS Safety Report 5337810-2 (Version None)
Quarter: 2007Q2

REPORT INFORMATION
  Report Type: 
  Country: None (occurrence: None)
  Receive Date: 20070309
  Receipt Date: 20060111
  Transmission Date: 20071010
  Serious: Yes (Other)
  Sender: FDA-Public Use
  Company Number: US200511001369

PATIENT
  Age: 74 Year
  Sex: Male
  Weight: 81.6 kg

DRUGS (33)
  1. GEMZAR [Suspect]
     Indication: NON-SMALL CELL LUNG CANCER
     Dosage: SEE IMAGE
     Dates: start: 20050308, end: 20050308
  2. GEMZAR [Suspect]
     Indication: NON-SMALL CELL LUNG CANCER
     Dosage: SEE IMAGE
     Dates: start: 20050404, end: 20050404
  3. GEMZAR [Suspect]
     Indication: NON-SMALL CELL LUNG CANCER
     Dosage: SEE IMAGE
     Dates: start: 20050502, end: 20050502
  4. GEMZAR [Suspect]
     Indication: NON-SMALL CELL LUNG CANCER
     Dosage: SEE IMAGE
     Dates: start: 20050509, end: 20050509
  5. GEMZAR [Suspect]
     Indication: NON-SMALL CELL LUNG CANCER
     Dosage: SEE IMAGE
     Dates: start: 20050531, end: 20050531
  6. GEMZAR [Suspect]
     Indication: NON-SMALL CELL LUNG CANCER
     Dosage: SEE IMAGE
     Dates: start: 20050607, end: 20050607
  7. GEMZAR [Suspect]
     Indication: NON-SMALL CELL LUNG CANCER
     Dosage: SEE IMAGE
     Dates: start: 20050627, end: 20050627
  8. GEMZAR [Suspect]
     Indication: NON-SMALL CELL LUNG CANCER
     Dosage: SEE IMAGE
     Dates: start: 20050705, end: 20050705
  9. GEMZAR [Suspect]
     Indication: NON-SMALL CELL LUNG CANCER
     Dosage: SEE IMAGE
     Dates: start: 20050725, end: 20050725
  10. GEMZAR [Suspect]
     Indication: NON-SMALL CELL LUNG CANCER
     Dosage: SEE IMAGE
     Dates: start: 20050801, end: 20050801
  11. GEMZAR [Suspect]
     Indication: NON-SMALL CELL LUNG CANCER
     Dosage: SEE IMAGE
     Dates: start: 20050815, end: 20050815
  12. GEMZAR [Suspect]
     Indication: NON-SMALL CELL LUNG CANCER
     Dosage: SEE IMAGE
     Dates: start: 20050822, end: 20050822
  13. GEMZAR [Suspect]
     Indication: NON-SMALL CELL LUNG CANCER
     Dosage: SEE IMAGE
     Dates: start: 20050907, end: 20050907
  14. GEMZAR [Suspect]
     Indication: NON-SMALL CELL LUNG CANCER
     Dosage: SEE IMAGE
     Dates: start: 20050916, end: 20050916
  15. GEMZAR [Suspect]
     Indication: NON-SMALL CELL LUNG CANCER
     Dosage: SEE IMAGE
     Dates: start: 20051003, end: 20051003
  16. GEMZAR [Suspect]
     Indication: NON-SMALL CELL LUNG CANCER
     Dosage: SEE IMAGE
     Dates: start: 20051017, end: 20051017
  17. GEMZAR [Suspect]
     Indication: NON-SMALL CELL LUNG CANCER
     Dosage: SEE IMAGE
     Dates: start: 20051031, end: 20051031
  18. GEMZAR [Suspect]
     Indication: NON-SMALL CELL LUNG CANCER
     Dosage: SEE IMAGE
     Dates: start: 20051114, end: 20051114
  19. CISPLATIN [Concomitant]
  20. MANNITOL [Concomitant]
  21. DECADRON [Concomitant]
  22. ANZEMET [Concomitant]
  23. ARANESP [Concomitant]
  24. LISINOPRIL [Concomitant]
  25. LASIX [Concomitant]
  26. LIPITOR [Concomitant]
  27. DILTIAZEM [Concomitant]
  28. PRILOSEC [Concomitant]
  29. MAGNESIUM OXIDE (MAGNESIUM OXIDE) [Concomitant]
  30. COUMADIN [Concomitant]
  31. SENOKOT [Concomitant]
  32. COMPAZINE [Concomitant]
  33. POTASSIUM CHLORIDE [Concomitant]

REACTIONS (8)
  - BLOOD LACTATE DEHYDROGENASE INCREASED [None]
  - DYSPNOEA [None]
  - HAEMOGLOBIN DECREASED [None]
  - PLATELET COUNT DECREASED [None]
  - PLATELET COUNT INCREASED [None]
  - PULMONARY TOXICITY [None]
  - WHITE BLOOD CELL COUNT DECREASED [None]
  - WHITE BLOOD CELL COUNT INCREASED [None]
